FAERS Safety Report 8415451-8 (Version None)
Quarter: 2012Q2

REPORT INFORMATION
  Report Type: 
  Country: None (occurrence: None)
  Receive Date: 20120606
  Receipt Date: 20120601
  Transmission Date: 20120825
  Serious: Yes (Other)
  Sender: FDA-Public Use
  Company Number: PHHY2011CA95806

PATIENT
  Sex: Male

DRUGS (1)
  1. SANDOSTATIN LAR [Suspect]
     Indication: CARCINOID SYNDROME
     Dosage: 30 MG, QMO
     Route: 030
     Dates: start: 20110923

REACTIONS (5)
  - DIARRHOEA [None]
  - BLOOD PRESSURE INCREASED [None]
  - FLATULENCE [None]
  - MUSCLE SPASMS [None]
  - INJECTION SITE HAEMORRHAGE [None]
